FAERS Safety Report 6978587-4 (Version None)
Quarter: 2010Q3

REPORT INFORMATION
  Report Type: 
  Country: None (occurrence: None)
  Receive Date: 20100913
  Receipt Date: 20100906
  Transmission Date: 20110219
  Serious: Yes (Hospitalization, Other)
  Sender: FDA-Public Use
  Company Number: JP-ROCHE-698247

PATIENT
  Sex: Female
  Weight: 62 kg

DRUGS (4)
  1. ACTEMRA [Suspect]
     Indication: RHEUMATOID ARTHRITIS
     Route: 041
     Dates: start: 20100317, end: 20100317
  2. AZULFIDINE [Concomitant]
     Dosage: FORM: PERORAL AGENT.
     Route: 048
     Dates: start: 20090929, end: 20100330
  3. CELECOXIB [Concomitant]
     Dosage: FORM: PERORAL AGENT.
     Route: 048
     Dates: start: 20091028, end: 20100330
  4. MUCOSTA [Concomitant]
     Dosage: FORM: PERORAL AGENT.
     Route: 048
     Dates: start: 20090929, end: 20100330

REACTIONS (3)
  - CHEST DISCOMFORT [None]
  - EPSTEIN-BARR VIRUS INFECTION [None]
  - LIVER DISORDER [None]
